FAERS Safety Report 14384510 (Version 1)
Quarter: 2018Q1

REPORT INFORMATION
  Report Type: Other
  Country: GB (occurrence: GB)
  Receive Date: 20180115
  Receipt Date: 20180115
  Transmission Date: 20180509
  Serious: Yes (Other)
  Sender: FDA-Public Use
  Company Number: GB-VALIDUS PHARMACEUTICALS LLC-GB-2018VAL000096

PATIENT
  Age: 84 Year
  Sex: Male

DRUGS (1)
  1. PENTOXIFYLLINE. [Suspect]
     Active Substance: PENTOXIFYLLINE
     Indication: PERIPHERAL VASCULAR DISORDER
     Dosage: 1200 MG, QD
     Route: 048
     Dates: start: 201710, end: 20171110

REACTIONS (5)
  - Anal incontinence [Recovering/Resolving]
  - Confusional state [Recovering/Resolving]
  - Balance disorder [Recovering/Resolving]
  - Drooling [Recovering/Resolving]
  - Urinary incontinence [Recovering/Resolving]
